FAERS Safety Report 8575311-9 (Version None)
Quarter: 2012Q3

REPORT INFORMATION
  Report Type: 
  Country: None (occurrence: None)
  Receive Date: 20120807
  Receipt Date: 20120802
  Transmission Date: 20120928
  Serious: No
  Sender: FDA-Public Use
  Company Number: US-PFIZER INC-2012188752

PATIENT
  Age: 56 Year
  Sex: Male
  Weight: 81.633 kg

DRUGS (1)
  1. NEURONTIN [Suspect]
     Indication: CONVULSION
     Dosage: 300 MG, 3X/DAY

REACTIONS (3)
  - COORDINATION ABNORMAL [None]
  - AMNESIA [None]
  - DYSKINESIA [None]
